FAERS Safety Report 16598471 (Version 1)
Quarter: 2019Q3

REPORT INFORMATION
  Report Type: Report from Study
  Country: IT (occurrence: IT)
  Receive Date: 20190719
  Receipt Date: 20190719
  Transmission Date: 20191004
  Serious: Yes (Life-Threatening)
  Sender: FDA-Public Use
  Company Number: IT-RECRO GAINESVILLE LLC-REPH-2019-000119

PATIENT
  Age: 6 Month

DRUGS (2)
  1. VERAPAMIL HYDROCHLORIDE SUSTAINED RELEASE [Suspect]
     Active Substance: VERAPAMIL HYDROCHLORIDE
     Indication: SUPRAVENTRICULAR TACHYCARDIA
     Dosage: 0.175 MG/KG, ONE TIME DOSE
     Route: 042
  2. BETA BLOCKING AGENTS [Concomitant]
     Active Substance: UNSPECIFIED INGREDIENT
     Indication: WOLFF-PARKINSON-WHITE SYNDROME
     Dosage: UNK

REACTIONS (2)
  - Off label use [Unknown]
  - Pulseless electrical activity [Recovered/Resolved]
